FAERS Safety Report 7970564-X (Version None)
Quarter: 2011Q4

REPORT INFORMATION
  Report Type: 
  Country: None (occurrence: None)
  Receive Date: 20111212
  Receipt Date: 20111207
  Transmission Date: 20120403
  Serious: Yes (Hospitalization, Other)
  Sender: FDA-Public Use
  Company Number: BR-BAYER-2011-041468

PATIENT
  Age: 38 Year
  Sex: Female
  Weight: 56 kg

DRUGS (5)
  1. BETASERON [Suspect]
     Indication: MULTIPLE SCLEROSIS
     Dosage: 8 MIU, QOD
     Route: 058
     Dates: start: 20110323, end: 20110518
  2. BETASERON [Suspect]
     Dosage: 8 MIU, QOD
     Route: 058
     Dates: start: 20110323, end: 20110501
  3. IBUPROFEN [Concomitant]
     Indication: ALLERGY PROPHYLAXIS
     Dosage: 1 DF, UNK
     Route: 048
     Dates: start: 20110323, end: 20110501
  4. ACETAMINOPHEN [Concomitant]
     Indication: ALLERGY PROPHYLAXIS
     Dosage: 1 DF, UNK
     Route: 048
     Dates: start: 20110501
  5. CENTRUM [Concomitant]
     Indication: HYPOVITAMINOSIS
     Dosage: UNK
     Dates: start: 20110101

REACTIONS (9)
  - ABDOMINAL PAIN UPPER [None]
  - RETCHING [None]
  - OCULAR ICTERUS [None]
  - YELLOW SKIN [None]
  - LIVER DISORDER [None]
  - HEPATIC CONGESTION [None]
  - ABDOMINAL DISTENSION [None]
  - OEDEMA PERIPHERAL [None]
  - SWELLING FACE [None]
